FAERS Safety Report 8244142 (Version 3)
Quarter: 2014Q3

REPORT INFORMATION
  Report Type: Spontaneous
  Country: TR (occurrence: TR)
  Receive Date: 20111115
  Receipt Date: 20140729
  Transmission Date: 20150326
  Serious: Yes (Other)
  Sender: FDA-Public Use
  Company Number: TR-RANBAXY-2011RR-50288

PATIENT
  Age: 5 Year
  Sex: Male

DRUGS (14)
  1. RISPERIDONE. [Concomitant]
     Active Substance: RISPERIDONE
     Indication: AUTISM
     Dosage: 0.25 MG/DAY
     Route: 065
  2. RISPERIDONE. [Concomitant]
     Active Substance: RISPERIDONE
     Indication: AUTISM
     Dosage: 0.5MG/DAY
     Route: 065
  3. RISPERIDONE. [Suspect]
     Active Substance: RISPERIDONE
     Indication: ABNORMAL BEHAVIOUR
  4. RISPERIDONE. [Concomitant]
     Active Substance: RISPERIDONE
     Indication: ABNORMAL BEHAVIOUR
  5. METHYLPHENIDATE [Suspect]
     Active Substance: METHYLPHENIDATE
     Indication: AUTISM
     Route: 065
  6. RISPERIDONE. [Concomitant]
     Active Substance: RISPERIDONE
     Indication: AUTISM
     Dosage: 0.25MG/DAY
     Route: 065
  7. HALLOPERIDOL [Concomitant]
     Indication: AUTISM
     Route: 065
  8. HALLOPERIDOL [Concomitant]
     Indication: ABNORMAL BEHAVIOUR
  9. RISPERIDONE. [Suspect]
     Active Substance: RISPERIDONE
     Indication: AUTISM
     Dosage: 0.5 MG, UNK
     Route: 065
  10. RISPERIDONE. [Concomitant]
     Active Substance: RISPERIDONE
     Indication: ABNORMAL BEHAVIOUR
  11. RISPERIDONE. [Concomitant]
     Active Substance: RISPERIDONE
     Indication: ABNORMAL BEHAVIOUR
  12. RISPERIDONE. [Suspect]
     Active Substance: RISPERIDONE
     Indication: AUTISM
     Dosage: 0.25 MG/DAY
     Route: 065
  13. RISPERIDONE. [Suspect]
     Active Substance: RISPERIDONE
     Indication: ABNORMAL BEHAVIOUR
  14. METHYLPHENIDATE [Suspect]
     Active Substance: METHYLPHENIDATE
     Indication: ABNORMAL BEHAVIOUR

REACTIONS (2)
  - Hepatic function abnormal [Recovered/Resolved]
  - Agitation [Recovered/Resolved]
